FAERS Safety Report 21980895 (Version 1)
Quarter: 2023Q1

REPORT INFORMATION
  Report Type: Report from Study
  Country: IN (occurrence: IN)
  Receive Date: 20230211
  Receipt Date: 20230211
  Transmission Date: 20230418
  Serious: Yes (Other)
  Sender: FDA-Public Use
  Company Number: IN-002147023-NVSC2022IN009500

PATIENT
  Age: 59 Year
  Sex: Male

DRUGS (13)
  1. VOTRIENT [Suspect]
     Active Substance: PAZOPANIB HYDROCHLORIDE
     Indication: Renal cell carcinoma
     Dosage: 400 MG, QD
     Route: 065
     Dates: start: 20201209, end: 20201229
  2. VOTRIENT [Suspect]
     Active Substance: PAZOPANIB HYDROCHLORIDE
     Dosage: 400 MG, BID
     Route: 065
     Dates: start: 20201230, end: 20210120
  3. VOTRIENT [Suspect]
     Active Substance: PAZOPANIB HYDROCHLORIDE
     Dosage: 400 MG BD + 400 MG OD ALTERNATIVE DAYS
     Route: 065
     Dates: start: 20210121, end: 20210224
  4. VOTRIENT [Suspect]
     Active Substance: PAZOPANIB HYDROCHLORIDE
     Dosage: 400 MG, BID
     Route: 065
     Dates: start: 20210225, end: 20210402
  5. VOTRIENT [Suspect]
     Active Substance: PAZOPANIB HYDROCHLORIDE
     Dosage: 400 MG, QD
     Route: 065
     Dates: start: 20210403, end: 20210818
  6. VOTRIENT [Suspect]
     Active Substance: PAZOPANIB HYDROCHLORIDE
     Dosage: 400 MG BD+ 400 MG OD ALTERNATIVE DAYS
     Route: 065
     Dates: start: 20210819, end: 20211017
  7. VOTRIENT [Suspect]
     Active Substance: PAZOPANIB HYDROCHLORIDE
     Dosage: 400 MG, QD
     Route: 065
     Dates: start: 20211018, end: 20211201
  8. VOTRIENT [Suspect]
     Active Substance: PAZOPANIB HYDROCHLORIDE
     Dosage: 400 MG BD+ 400 MG OD ALTERNATIVE DAYS
     Route: 065
     Dates: start: 20211202, end: 20211217
  9. VOTRIENT [Suspect]
     Active Substance: PAZOPANIB HYDROCHLORIDE
     Dosage: 400 MG, BID
     Route: 065
     Dates: start: 20211218
  10. VOTRIENT [Suspect]
     Active Substance: PAZOPANIB HYDROCHLORIDE
     Dosage: 400 MG, BID
     Route: 065
     Dates: start: 202112
  11. VOTRIENT [Suspect]
     Active Substance: PAZOPANIB HYDROCHLORIDE
     Dosage: 800MG BD AND 400MG OD EVERY ALT DAY
     Route: 065
     Dates: start: 20221020
  12. VOTRIENT [Suspect]
     Active Substance: PAZOPANIB HYDROCHLORIDE
     Dosage: 400 MG BD AND 400 MG OD FOR EVERY ALTERNATE DAY
     Route: 065
     Dates: start: 20221020, end: 20230201
  13. VOTRIENT [Suspect]
     Active Substance: PAZOPANIB HYDROCHLORIDE
     Dosage: 400 MG BD AND 400 MG OD FOR EVERY ALTERNATE DAY
     Route: 048
     Dates: start: 20230202

REACTIONS (9)
  - Palmar-plantar erythrodysaesthesia syndrome [Recovered/Resolved]
  - Rash [Unknown]
  - Product use issue [Unknown]
  - Rash [Recovered/Resolved]
  - Hypertension [Recovered/Resolved]
  - Genital infection [Recovered/Resolved]
  - Diarrhoea [Recovered/Resolved]
  - Decreased appetite [Recovered/Resolved]
  - Inappropriate schedule of product administration [Unknown]

NARRATIVE: CASE EVENT DATE: 20201201
